FAERS Safety Report 9052664 (Version 1)
Quarter: 2013Q1

REPORT INFORMATION
  Report Type: Spontaneous
  Country: US (occurrence: US)
  Receive Date: 20130207
  Receipt Date: 20130207
  Transmission Date: 20140127
  Serious: Yes (Hospitalization)
  Sender: FDA-Public Use
  Company Number: US-ACTELION-A-NJ2013-77762

PATIENT
  Age: 36 Year
  Sex: Female

DRUGS (1)
  1. VELETRI [Suspect]
     Indication: PULMONARY ARTERIAL HYPERTENSION
     Dosage: 19.5 NG/KG, PER MIN
     Route: 041
     Dates: start: 20111231

REACTIONS (2)
  - Cough [Unknown]
  - Dyspnoea [Unknown]
